FAERS Safety Report 6725132-4 (Version None)
Quarter: 2010Q2

REPORT INFORMATION
  Report Type: 
  Country: None (occurrence: None)
  Receive Date: 20100514
  Receipt Date: 20100507
  Transmission Date: 20101027
  Serious: Yes (Hospitalization)
  Sender: FDA-Public Use
  Company Number: JP-SHIRE-SPV1-2010-00879

PATIENT

DRUGS (20)
  1. 405 (LANTHANUM CARBONATE) [Suspect]
     Indication: HYPERPHOSPHATAEMIA
     Route: 048
     Dates: start: 20090615, end: 20090814
  2. 405 (LANTHANUM CARBONATE) [Suspect]
     Dosage: 1500 MG, 1X/DAY:QD
     Route: 048
     Dates: start: 20090814, end: 20091127
  3. 405 (LANTHANUM CARBONATE) [Suspect]
     Dosage: 1750 MG, 1X/DAY:QD
     Route: 048
     Dates: start: 20091127, end: 20091211
  4. 405 (LANTHANUM CARBONATE) [Suspect]
     Dosage: 2000 MG, 1X/DAY:QD
     Route: 048
     Dates: start: 20091211
  5. RENAGEL [Concomitant]
     Indication: HYPERPHOSPHATAEMIA
     Route: 048
  6. CALCIUM CARBONATE [Concomitant]
     Indication: HYPERPHOSPHATAEMIA
     Dates: start: 20090424, end: 20090731
  7. CALCIUM CARBONATE [Concomitant]
     Route: 048
     Dates: start: 20090731, end: 20090814
  8. ALFAROL [Concomitant]
     Route: 048
     Dates: start: 20091016, end: 20091113
  9. ALFAROL [Concomitant]
     Route: 048
     Dates: start: 20091113, end: 20091211
  10. ALFAROL [Concomitant]
     Route: 048
     Dates: start: 20091211
  11. CINACALCET HYDROCHLORIDE [Concomitant]
     Indication: HYPERPARATHYROIDISM SECONDARY
     Dates: start: 20090325, end: 20090619
  12. CINACALCET HYDROCHLORIDE [Concomitant]
     Route: 048
     Dates: start: 20090619, end: 20090918
  13. CINACALCET HYDROCHLORIDE [Concomitant]
     Route: 048
     Dates: start: 20090918, end: 20091211
  14. CINACALCET HYDROCHLORIDE [Concomitant]
     Route: 048
     Dates: start: 20091211
  15. VESICARE [Concomitant]
     Indication: POLLAKIURIA
     Route: 048
  16. HERBESSER R [Concomitant]
     Route: 048
  17. GASMOTIN [Concomitant]
     Route: 048
  18. DROXIDOPA [Concomitant]
     Indication: BLOOD PRESSURE DECREASED
     Route: 048
  19. WARFARIN SODIUM [Concomitant]
     Route: 048
  20. ITRIZOLE [Concomitant]
     Indication: TINEA INFECTION
     Route: 048
     Dates: start: 20090615

REACTIONS (1)
  - HYPERPARATHYROIDISM SECONDARY [None]
